FAERS Safety Report 13681127 (Version 1)
Quarter: 2017Q2

REPORT INFORMATION
  Report Type: Spontaneous
  Country: US (occurrence: US)
  Receive Date: 20170622
  Receipt Date: 20170622
  Transmission Date: 20170830
  Serious: No
  Sender: FDA-Public Use
  Company Number: None

PATIENT
  Age: 62 Year
  Sex: Female

DRUGS (1)
  1. NEORAL [Suspect]
     Active Substance: CYCLOSPORINE

REACTIONS (3)
  - Dry skin [None]
  - Hair growth abnormal [None]
  - Madarosis [None]

NARRATIVE: CASE EVENT DATE: 20170501
